FAERS Safety Report 25335663 (Version 1)
Quarter: 2025Q2

REPORT INFORMATION
  Report Type: Spontaneous
  Country: IT (occurrence: IT)
  Receive Date: 20250520
  Receipt Date: 20250520
  Transmission Date: 20250716
  Serious: No
  Sender: IPSEN BIOPHARMACEUTICALS, INC.
  Company Number: IT-IPSEN Group, Research and Development-2025-08780

PATIENT
  Sex: Male

DRUGS (1)
  1. BYLVAY [Suspect]
     Active Substance: ODEVIXIBAT
     Indication: Product used for unknown indication
     Route: 065
     Dates: start: 2021, end: 2024

REACTIONS (4)
  - Bile acids increased [Unknown]
  - Pruritus [Unknown]
  - Gastroenteritis [Unknown]
  - Drug ineffective [Unknown]
